FAERS Safety Report 10035195 (Version 1)
Quarter: 2014Q1

REPORT INFORMATION
  Report Type: Spontaneous
  Country: US (occurrence: None)
  Receive Date: 20140306
  Receipt Date: 20140306
  Transmission Date: 20141002
  Serious: Yes (Other)
  Sender: FDA-Public Use
  Company Number: 163-21880-13123579

PATIENT
  Age: 73 Year
  Sex: Male
  Weight: 88.5 kg

DRUGS (6)
  1. REVLIMID (LENALIDOMIDE) (CAPSULES) [Suspect]
     Indication: PLASMA CELL MYELOMA
     Dosage: 21 IN 28 D
     Route: 048
     Dates: start: 201306
  2. LISINOPRIL (LISINOPRIL) [Concomitant]
  3. ASPIRIN (ACETYLSALICYLIC ACID) [Concomitant]
  4. ALLOPURINOL (ALLOPURINOL) [Concomitant]
  5. COLCRYS (COLCHICINE) [Concomitant]
  6. TIMOLOL (TIMOLOL) (NONE) [Concomitant]

REACTIONS (1)
  - Intraocular pressure increased [None]
